FAERS Safety Report 6634441-9 (Version None)
Quarter: 2010Q1

REPORT INFORMATION
  Report Type: 
  Country: None (occurrence: None)
  Receive Date: 20100315
  Receipt Date: 20100301
  Transmission Date: 20100710
  Serious: No
  Sender: FDA-Public Use
  Company Number: US-B.I. PHARMACEUTICALS,INC./RIDGEFIELD-2010-BP-02519BP

PATIENT
  Sex: Female

DRUGS (3)
  1. SPIRIVA [Suspect]
     Indication: CHRONIC OBSTRUCTIVE PULMONARY DISEASE
     Dosage: 18 MCG
     Route: 055
     Dates: start: 20100126
  2. SPIRIVA [Suspect]
     Indication: ASTHMA
     Route: 055
     Dates: start: 20090201, end: 20091201
  3. SYMBICORT [Concomitant]

REACTIONS (2)
  - PRURITUS [None]
  - RASH [None]
